FAERS Safety Report 16395771 (Version 1)
Quarter: 2019Q2

REPORT INFORMATION
  Report Type: Spontaneous
  Country: None (occurrence: CN)
  Receive Date: 20190605
  Receipt Date: 20190605
  Transmission Date: 20190711
  Serious: No
  Sender: FDA-Public Use
  Company Number: CN-B. BRAUN MEDICAL INC.-2067829

PATIENT
  Age: 84 Year
  Sex: Female

DRUGS (1)
  1. NUTRILIPID I.V. FAT EMULSION [Suspect]
     Active Substance: SOYBEAN OIL
     Indication: NUTRITIONAL SUPPLEMENTATION

REACTIONS (2)
  - Chills [None]
  - Pyrexia [None]
